FAERS Safety Report 8375789-X (Version None)
Quarter: 2012Q2

REPORT INFORMATION
  Report Type: 
  Country: None (occurrence: None)
  Receive Date: 20120518
  Receipt Date: 20120518
  Transmission Date: 20120825
  Serious: Yes (Other)
  Sender: FDA-Public Use
  Company Number: None

PATIENT
  Age: 77 Year
  Sex: Male
  Weight: 72.7 kg

DRUGS (1)
  1. LEVAQUIN [Suspect]

REACTIONS (2)
  - INFECTION [None]
  - ELECTROCARDIOGRAM QT PROLONGED [None]
